FAERS Safety Report 8058956-4 (Version None)
Quarter: 2012Q1

REPORT INFORMATION
  Report Type: 
  Country: None (occurrence: None)
  Receive Date: 20120120
  Receipt Date: 20120110
  Transmission Date: 20120608
  Serious: Yes (Hospitalization)
  Sender: FDA-Public Use
  Company Number: US-ACTELION-A-NJ2008-21657

PATIENT

DRUGS (4)
  1. CALCIUM CHANNEL BLOCKERS [Concomitant]
  2. OXYGEN [Concomitant]
  3. TRACLEER [Suspect]
     Indication: PULMONARY ARTERIAL HYPERTENSION
     Dosage: UNK
     Route: 048
     Dates: start: 20080730
  4. COUMADIN [Concomitant]

REACTIONS (19)
  - INFREQUENT BOWEL MOVEMENTS [None]
  - HOT FLUSH [None]
  - CARDIAC DISORDER [None]
  - PULMONARY HYPERTENSION [None]
  - CONDITION AGGRAVATED [None]
  - FATIGUE [None]
  - FAECES DISCOLOURED [None]
  - DYSPEPSIA [None]
  - OEDEMA PERIPHERAL [None]
  - DYSPNOEA [None]
  - ABDOMINAL DISCOMFORT [None]
  - VISION BLURRED [None]
  - COUGH [None]
  - ARTHRALGIA [None]
  - PRURITUS [None]
  - DIARRHOEA [None]
  - PALPITATIONS [None]
  - HEADACHE [None]
  - OEDEMA [None]
